FAERS Safety Report 23652935 (Version 1)
Quarter: 2024Q1

REPORT INFORMATION
  Report Type: Other
  Country: IN (occurrence: IN)
  Receive Date: 20240320
  Receipt Date: 20240320
  Transmission Date: 20240409
  Serious: Yes (Hospitalization)
  Sender: FDA-Public Use
  Company Number: IN-B.Braun Medical Inc.-2154566

PATIENT
  Age: 19 Year
  Sex: Female

DRUGS (1)
  1. BUPIVACAINE HYDROCHLORIDE [Suspect]
     Active Substance: BUPIVACAINE HYDROCHLORIDE\BUPIVACAINE HYDROCHLORIDE ANHYDROUS

REACTIONS (3)
  - Intracranial hypotension [Recovered/Resolved]
  - Maternal exposure during delivery [Recovered/Resolved]
  - Subdural haematoma [Recovered/Resolved]
